FAERS Safety Report 26070358 (Version 2)
Quarter: 2025Q4

REPORT INFORMATION
  Report Type: Spontaneous
  Country: CN (occurrence: CN)
  Receive Date: 20251120
  Receipt Date: 20251205
  Transmission Date: 20260118
  Serious: Yes (Hospitalization)
  Sender: PFIZER
  Company Number: CN-PFIZER INC-PV202500134271

PATIENT
  Age: 16 Year
  Sex: Male

DRUGS (2)
  1. XYNTHA [Suspect]
     Active Substance: MOROCTOCOG ALFA
     Indication: Factor VIII deficiency
     Dosage: TWICE WEEKLY
     Dates: start: 2024
  2. XYNTHA [Suspect]
     Active Substance: MOROCTOCOG ALFA
     Dosage: 2000 IU, 2X/DAY
     Route: 042

REACTIONS (6)
  - Haemophilic arthropathy [Recovering/Resolving]
  - Disease recurrence [Recovering/Resolving]
  - Joint swelling [Unknown]
  - Arthralgia [Unknown]
  - Peroneal nerve palsy [Recovering/Resolving]
  - Intermittent claudication [Recovering/Resolving]
